FAERS Safety Report 5474925-2 (Version None)
Quarter: 2007Q4

REPORT INFORMATION
  Report Type: 
  Country: None (occurrence: None)
  Receive Date: 20071002
  Receipt Date: 20070924
  Transmission Date: 20080405
  Serious: Yes (Other)
  Sender: FDA-Public Use
  Company Number: US-SHR-US-2007-006709

PATIENT
  Age: 48 Year
  Sex: Female

DRUGS (2)
  1. BETASERON [Suspect]
     Dosage: 8 MIU, EVERY 2D
     Route: 058
     Dates: start: 20040730
  2. BETASERON [Suspect]
     Dosage: 8 MIU, OTHER
     Route: 058
     Dates: start: 20060901, end: 20061001

REACTIONS (1)
  - BLINDNESS UNILATERAL [None]
